FAERS Safety Report 5223873-1 (Version None)
Quarter: 2007Q1

REPORT INFORMATION
  Report Type: 
  Country: None (occurrence: None)
  Receive Date: 20070130
  Receipt Date: 20070123
  Transmission Date: 20070707
  Serious: Yes (Death, Hospitalization, Other)
  Sender: FDA-Public Use
  Company Number: PHHO2006US11747

PATIENT
  Age: 54 Year
  Sex: Female
  Weight: 46.27 kg

DRUGS (30)
  1. MYCOPHENOLATE MOFETIL [Suspect]
     Indication: HEART TRANSPLANT
     Dosage: 1.5 MG, Q12H
     Route: 048
     Dates: start: 20060530
  2. MYCOPHENOLATE MOFETIL [Suspect]
     Dosage: 1 MG, Q12H
     Route: 048
  3. MYCOPHENOLATE MOFETIL [Suspect]
     Dosage: 1.5 MG, Q12H
     Route: 048
  4. MYCOPHENOLATE MOFETIL [Suspect]
     Dosage: 1 MG, Q12H
     Route: 048
     Dates: end: 20060719
  5. NEORAL [Suspect]
     Indication: HEART TRANSPLANT
     Dosage: 200 MG, Q12H
     Route: 048
     Dates: start: 20060530
  6. NEORAL [Suspect]
     Dosage: 275 MG, Q12H
     Route: 048
  7. NEORAL [Suspect]
     Dosage: 100 MG, Q12H
     Route: 048
     Dates: end: 20060719
  8. NEORAL [Suspect]
     Dosage: 75 MG, BID
     Route: 048
  9. PREDNISONE [Concomitant]
     Indication: HEART TRANSPLANT
     Dosage: 100 MG, QD
     Route: 048
     Dates: start: 20060530
  10. PREDNISONE [Concomitant]
     Dosage: 10 MG, QD
     Dates: start: 20060719, end: 20060721
  11. DIFLUCAN [Concomitant]
     Indication: OESOPHAGITIS
     Dosage: 200 MG
     Dates: start: 20060712
  12. DIFLUCAN [Concomitant]
     Dosage: 100 MG, QD
     Dates: start: 20060713, end: 20060718
  13. POTASSIUM CHLORIDE [Concomitant]
     Dosage: 20 MEQ, QD
     Dates: end: 20060729
  14. VALCYTE [Concomitant]
     Dosage: 450 MG, BID
  15. BACTRIM [Concomitant]
  16. PRILOSEC [Concomitant]
     Dosage: 20 MG, QD
     Dates: end: 20060721
  17. ISORDIL [Concomitant]
     Dosage: 20 MG, TID
     Dates: end: 20060721
  18. LASIX [Concomitant]
     Dosage: 10 MG, QD
  19. MYCELEX [Concomitant]
     Dosage: 10 MG, AFTER MEALS
  20. ASPIRIN [Concomitant]
     Dosage: 81 MG, QD
  21. COLACE [Concomitant]
     Dosage: 100 MG, BID
  22. ZOCOR [Concomitant]
     Dosage: 10 MG, QD
  23. VICODIN [Concomitant]
     Dosage: 1 OR 2 TABBS  PRN
     Dates: end: 20060724
  24. TYLENOL [Concomitant]
  25. BENADRYL [Concomitant]
  26. CYTOGAM [Concomitant]
  27. PREVACID [Concomitant]
     Dosage: 40 MG, QD
  28. CLOTRIMAZOLE [Concomitant]
  29. SOLU-MEDROL [Concomitant]
  30. VANCOMYCIN [Concomitant]

REACTIONS (28)
  - ANAEMIA [None]
  - ASPERGILLOSIS [None]
  - BLOOD CREATININE INCREASED [None]
  - BONE MARROW FAILURE [None]
  - CARDIAC ARREST [None]
  - CARDIOMEGALY [None]
  - DEEP VEIN THROMBOSIS [None]
  - DIARRHOEA [None]
  - DRUG TOXICITY [None]
  - HAEMORRHAGE [None]
  - HYPOTENSION [None]
  - IMMUNOSUPPRESSANT DRUG LEVEL INCREASED [None]
  - LEUKOPENIA [None]
  - LUNG CONSOLIDATION [None]
  - LUNG INFILTRATION [None]
  - MENTAL STATUS CHANGES [None]
  - MULTI-ORGAN FAILURE [None]
  - PANCYTOPENIA [None]
  - PARAINFLUENZAE VIRUS INFECTION [None]
  - PERICARDIAL DRAINAGE [None]
  - PERICARDIAL EFFUSION [None]
  - PLEURAL EFFUSION [None]
  - PNEUMONIA [None]
  - PULMONARY VASCULAR DISORDER [None]
  - RENAL IMPAIRMENT [None]
  - RESPIRATORY FAILURE [None]
  - SEPSIS [None]
  - THROMBOCYTOPENIA [None]
